FAERS Safety Report 11229633 (Version 2)
Quarter: 2015Q3

REPORT INFORMATION
  Report Type: Spontaneous
  Country: US (occurrence: US)
  Receive Date: 20150630
  Receipt Date: 20150716
  Transmission Date: 20151125
  Serious: Yes (Other)
  Sender: FDA-Public Use
  Company Number: US-PFIZER INC-2015211386

PATIENT
  Age: 48 Year
  Sex: Female

DRUGS (7)
  1. ACTIVIA [Concomitant]
     Indication: GASTROENTERITIS VIRAL
     Dosage: UNK
  2. SAVELLA [Suspect]
     Active Substance: MILNACIPRAN HYDROCHLORIDE
     Indication: FIBROMYALGIA
     Dosage: UNK
  3. SAVELLA [Suspect]
     Active Substance: MILNACIPRAN HYDROCHLORIDE
     Indication: ARTHRITIS
  4. LYRICA [Suspect]
     Active Substance: PREGABALIN
     Indication: FIBROMYALGIA
     Dosage: UNK (100 MG OR 150 MG)
  5. LYRICA [Suspect]
     Active Substance: PREGABALIN
     Indication: ARTHRITIS
     Dosage: 300 MG, 2X/DAY (IN THE MORNING AND AT NIGHT)
     Dates: start: 2013
  6. TRAMADOL. [Concomitant]
     Active Substance: TRAMADOL
     Indication: BACK PAIN
     Dosage: UNK
  7. AMOXYCILLIN [Concomitant]
     Active Substance: AMOXICILLIN
     Dosage: UNK

REACTIONS (8)
  - Muscle spasms [Unknown]
  - Drug ineffective [Unknown]
  - Pain in extremity [Unknown]
  - Weight increased [Unknown]
  - Medical device complication [Unknown]
  - Paraesthesia [Unknown]
  - Neck deformity [Unknown]
  - Tremor [Unknown]
